FAERS Safety Report 7785833-6 (Version None)
Quarter: 2011Q3

REPORT INFORMATION
  Report Type: 
  Country: None (occurrence: None)
  Receive Date: 20110929
  Receipt Date: 20110920
  Transmission Date: 20111222
  Serious: Yes (Hospitalization)
  Sender: FDA-Public Use
  Company Number: CA-SANOFI-AVENTIS-2011SA061255

PATIENT
  Age: 54 Year
  Sex: Female
  Weight: 166 kg

DRUGS (3)
  1. DOCETAXEL [Suspect]
     Indication: BREAST CANCER
     Route: 042
     Dates: start: 20110412, end: 20110412
  2. BLINDED THERAPY [Suspect]
     Indication: BREAST CANCER
     Dates: start: 20110412, end: 20110830
  3. DOCETAXEL [Suspect]
     Route: 042
     Dates: start: 20110830, end: 20110830

REACTIONS (1)
  - FEMUR FRACTURE [None]
